FAERS Safety Report 10283425 (Version 1)
Quarter: 2014Q3

REPORT INFORMATION
  Report Type: Spontaneous
  Country: US (occurrence: US)
  Receive Date: 20140708
  Receipt Date: 20140708
  Transmission Date: 20150326
  Serious: Yes (Other)
  Sender: FDA-Public Use
  Company Number: US-ENDO PHARMACEUTICALS INC.-OPER20130014

PATIENT
  Age: 50 Year
  Sex: Female

DRUGS (6)
  1. SOMA [Suspect]
     Active Substance: CARISOPRODOL
     Indication: DRUG DIVERSION
     Dosage: N/A
     Dates: start: 2007
  2. OXYCODONE HCL 30MG [Suspect]
     Active Substance: OXYCODONE HYDROCHLORIDE
     Indication: DRUG DIVERSION
  3. OPANA ER [Suspect]
     Active Substance: OXYMORPHONE HYDROCHLORIDE
     Indication: DRUG DIVERSION
     Dosage: N/A
     Dates: start: 2007, end: 2011
  4. OPANA ER [Suspect]
     Active Substance: OXYMORPHONE HYDROCHLORIDE
     Dosage: N/A
     Dates: start: 2007, end: 2011
  5. OXYCODONE HCL 30MG [Suspect]
     Active Substance: OXYCODONE HYDROCHLORIDE
     Indication: DRUG ABUSE
     Dosage: UNKNOWN
  6. OXYCONTIN [Suspect]
     Active Substance: OXYCODONE HYDROCHLORIDE
     Indication: DRUG DIVERSION
     Dosage: N/A
     Dates: start: 2007, end: 2011

REACTIONS (6)
  - Wrong technique in drug usage process [Unknown]
  - Drug abuse [Unknown]
  - Drug diversion [Unknown]
  - Prescription form tampering [Unknown]
  - Incorrect route of drug administration [Unknown]
  - Drug dependence [Unknown]

NARRATIVE: CASE EVENT DATE: 2007
